FAERS Safety Report 9124456 (Version 1)
Quarter: 2013Q1

REPORT INFORMATION
  Report Type: Spontaneous
  Country: US (occurrence: US)
  Receive Date: 20130116
  Receipt Date: 20130116
  Transmission Date: 20140127
  Serious: Yes (Death, Hospitalization, Other)
  Sender: FDA-Public Use
  Company Number: US-UCBSA-074690

PATIENT
  Age: 66 Year
  Sex: Female

DRUGS (11)
  1. METHYLPHENIDATE [Suspect]
     Route: 048
  2. LITHIUM [Suspect]
     Route: 048
  3. ESCITALOPRAM [Suspect]
     Route: 048
  4. ARIPIPRAZOLE [Suspect]
     Route: 048
  5. SIMVASTATIN [Suspect]
     Route: 048
  6. VALACYCLOVIR [Suspect]
     Route: 048
  7. PROPOXYPHENE [Suspect]
     Route: 048
  8. HYDROCODONE [Suspect]
     Route: 048
  9. OXYCODONE [Suspect]
     Route: 048
  10. TRIAZOLAM [Suspect]
     Route: 048
  11. ACETAMINOPHEN [Suspect]
     Route: 048

REACTIONS (2)
  - Completed suicide [Fatal]
  - Cardio-respiratory arrest [Fatal]
